FAERS Safety Report 19897723 (Version 1)
Quarter: 2021Q3

REPORT INFORMATION
  Report Type: Spontaneous
  Country: CN (occurrence: CN)
  Receive Date: 20210930
  Receipt Date: 20210930
  Transmission Date: 20211014
  Serious: Yes (Death, Other)
  Sender: FDA-Public Use
  Company Number: CN-SA-2021SA320055

PATIENT

DRUGS (6)
  1. TIROFIBAN [Concomitant]
     Active Substance: TIROFIBAN
     Dosage: 8 UG/KG, WITHIN 3 MIN
     Route: 042
  2. TIROFIBAN [Concomitant]
     Active Substance: TIROFIBAN
     Dosage: 0.15 UG/KG/MIN
     Route: 042
  3. HEPARIN SALINE [Concomitant]
     Route: 042
  4. ACETYLSALICYLIC ACID [Suspect]
     Active Substance: ASPIRIN
     Indication: ANTICOAGULANT THERAPY
     Dosage: 100 MG, QD
  5. CLOPIDOGREL BISULFATE. [Suspect]
     Active Substance: CLOPIDOGREL BISULFATE
     Indication: ANTICOAGULANT THERAPY
     Dosage: 75 MG, QD
  6. LIDOCAINE. [Concomitant]
     Active Substance: LIDOCAINE
     Indication: ANAESTHESIA

REACTIONS (2)
  - Brain herniation [Fatal]
  - Cerebral haemorrhage [Fatal]
